FAERS Safety Report 7136049-8 (Version None)
Quarter: 2010Q4

REPORT INFORMATION
  Report Type: 
  Country: None (occurrence: None)
  Receive Date: 20101204
  Receipt Date: 20101122
  Transmission Date: 20110411
  Serious: Yes (Other)
  Sender: FDA-Public Use
  Company Number: ES-BAYER-2010-000103

PATIENT

DRUGS (2)
  1. ULTRAVIST 150 [Suspect]
     Dosage: 120 ML, ONCE
     Route: 042
     Dates: start: 20101122, end: 20101122
  2. ULTRAVIST 150 [Suspect]
     Indication: COMPUTERISED TOMOGRAM THORAX

REACTIONS (2)
  - LARYNGEAL OEDEMA [None]
  - VOMITING [None]
